FAERS Safety Report 7830792-0 (Version None)
Quarter: 2011Q4

REPORT INFORMATION
  Report Type: 
  Country: None (occurrence: None)
  Receive Date: 20111021
  Receipt Date: 20111017
  Transmission Date: 20120403
  Serious: Yes (Hospitalization)
  Sender: FDA-Public Use
  Company Number: US-GLAXOSMITHKLINE-A0949339A

PATIENT
  Age: 42 Year
  Sex: Female

DRUGS (6)
  1. VANCOMYCIN HCL [Concomitant]
  2. PROPOFOL [Concomitant]
  3. CEPHALEXIN [Concomitant]
  4. ANTIBIOTICS [Concomitant]
  5. IMITREX [Suspect]
     Indication: MIGRAINE
     Route: 048
  6. IMITREX [Suspect]
     Route: 058

REACTIONS (7)
  - PARALYSIS [None]
  - CEREBRAL INFARCTION [None]
  - LOSS OF CONSCIOUSNESS [None]
  - RESPIRATORY ARREST [None]
  - APPARENT DEATH [None]
  - DYSPNOEA [None]
  - RESPIRATORY RATE DECREASED [None]
